FAERS Safety Report 4454803-8 (Version None)
Quarter: 2004Q3

REPORT INFORMATION
  Report Type: 
  Country: None (occurrence: None)
  Receive Date: 20040921
  Receipt Date: 20040909
  Transmission Date: 20050211
  Serious: Yes (Other)
  Sender: FDA-Public Use
  Company Number: CH-BRISTOL-MYERS SQUIBB COMPANY-12704094

PATIENT
  Age: 36 Year
  Sex: Female

DRUGS (11)
  1. EFAVIRENZ CAPS 600 MG [Suspect]
     Route: 048
  2. METHADONE HCL [Interacting]
     Dosage: DOSE RECUDED TO 160 MG DAILY ON AN UNSPECIFIED DATE
     Route: 048
  3. CHLORPROTHIXEN [Interacting]
     Route: 048
  4. FLUCONAZOLE [Interacting]
     Route: 048
  5. MIANSERIN HCL [Interacting]
     Route: 048
  6. LOPINAVIR + RITONAVIR [Interacting]
     Dosage: ^RITONAVIR + LOPINAVIR 264/MG + 1064 MG DAILY^
     Route: 048
  7. OXAZEPAM [Concomitant]
  8. ZIDOVUDINE [Concomitant]
  9. FLUNITRAZEPAM [Concomitant]
  10. LORMETAZEPAM [Concomitant]
  11. MORPHINE [Concomitant]

REACTIONS (4)
  - DRUG INTERACTION [None]
  - ELECTROCARDIOGRAM QT PROLONGED [None]
  - TORSADE DE POINTES [None]
  - VENTRICULAR TACHYCARDIA [None]
